FAERS Safety Report 20649372 (Version 2)
Quarter: 2022Q2

REPORT INFORMATION
  Report Type: Report from Study
  Country: NL (occurrence: NL)
  Receive Date: 20220329
  Receipt Date: 20220421
  Transmission Date: 20220721
  Serious: Yes (Death, Other)
  Sender: FDA-Public Use
  Company Number: NL-ABBVIE-22K-114-4320440-00

PATIENT
  Age: 78 Year
  Sex: Male

DRUGS (2)
  1. CARBIDOPA\LEVODOPA [Suspect]
     Active Substance: CARBIDOPA\LEVODOPA
     Indication: Parkinson^s disease
     Dosage: MD 3.5 ML; CD 6.4 ML/H; ED 3.0 ML; ND 0.0 ML; CND 3.7 ML/H; END 0.8 ML
     Route: 050
  2. CARBIDOPA\LEVODOPA [Suspect]
     Active Substance: CARBIDOPA\LEVODOPA
     Dosage: MD: 1.7 ML, CD: 3.2 ML/H, ED: 1.5 ML
     Route: 050

REACTIONS (11)
  - Palliative care [Unknown]
  - Cerebral haemorrhage [Fatal]
  - Hallucination [Unknown]
  - Stress [Not Recovered/Not Resolved]
  - Incontinence [Not Recovered/Not Resolved]
  - Dysstasia [Not Recovered/Not Resolved]
  - Mobility decreased [Not Recovered/Not Resolved]
  - Urinary tract infection [Not Recovered/Not Resolved]
  - Bedridden [Not Recovered/Not Resolved]
  - Tremor [Not Recovered/Not Resolved]
  - Hyperkinesia [Not Recovered/Not Resolved]

NARRATIVE: CASE EVENT DATE: 20220101
